FAERS Safety Report 10156868 (Version 1)
Quarter: 2014Q2

REPORT INFORMATION
  Report Type: Spontaneous
  Country: US (occurrence: US)
  Receive Date: 20140507
  Receipt Date: 20140507
  Transmission Date: 20141212
  Serious: No
  Sender: FDA-Public Use
  Company Number: US-JNJFOC-20140407862

PATIENT
  Sex: Female

DRUGS (4)
  1. INVEGA [Suspect]
     Indication: PSYCHOTIC DISORDER
     Route: 048
     Dates: start: 201307, end: 201309
  2. INVEGA [Suspect]
     Indication: PSYCHOTIC DISORDER
     Route: 048
     Dates: start: 201401
  3. INVEGA [Suspect]
     Indication: BIPOLAR DISORDER
     Route: 048
     Dates: start: 201307, end: 201309
  4. INVEGA [Suspect]
     Indication: BIPOLAR DISORDER
     Route: 048
     Dates: start: 201401

REACTIONS (2)
  - Exposure during pregnancy [Not Recovered/Not Resolved]
  - Drug effect decreased [Unknown]
